FAERS Safety Report 20939768 (Version 1)
Quarter: 2022Q2

REPORT INFORMATION
  Report Type: Spontaneous
  Country: US (occurrence: None)
  Receive Date: 20220609
  Receipt Date: 20220609
  Transmission Date: 20220721
  Serious: No
  Sender: FDA-Public Use
  Company Number: None

PATIENT
  Sex: Male

DRUGS (24)
  1. HUMIRA [Suspect]
     Active Substance: ADALIMUMAB
     Indication: Ankylosing spondylitis
     Dosage: 40MG/0.4ML??INJECT 0.4 MILLILITER BY SUBCUTANEOUS ROUTE EVERY 2 WEEKS IN THE ABDOMEN OR THIGH (ROTAT
     Route: 058
     Dates: start: 20220304
  2. ADVAIR HFA [Concomitant]
     Active Substance: FLUTICASONE PROPIONATE\SALMETEROL XINAFOATE
  3. ENBREL [Concomitant]
     Active Substance: ETANERCEPT
  4. FLUTICASONE SPR [Concomitant]
  5. GABAPENTIN TAB [Concomitant]
  6. KETOROLAC TAB [Concomitant]
  7. LISINOPRIL [Concomitant]
     Active Substance: LISINOPRIL
  8. MIRTAZAPINE TAB [Concomitant]
  9. NAPROXEN TAB [Concomitant]
  10. NORVASC TAB [Concomitant]
  11. PREDNISONE [Concomitant]
     Active Substance: PREDNISONE
  12. PRILOSEC OTC TAB [Concomitant]
  13. PROAIR HFA [Concomitant]
     Active Substance: ALBUTEROL SULFATE
  14. PROZAC CAP [Concomitant]
  15. REMERON SLTB TAB [Concomitant]
  16. REXULTI TAB [Concomitant]
  17. STIOLTO AER [Concomitant]
  18. SULFASALAZINE [Concomitant]
     Active Substance: SULFASALAZINE
  19. TAMSULOSIN [Concomitant]
     Active Substance: TAMSULOSIN
  20. TIZANIDINE HYDROCHLORIDE [Concomitant]
     Active Substance: TIZANIDINE HYDROCHLORIDE
  21. TRAZODONE TAB [Concomitant]
  22. VITAMIN D CAP [Concomitant]
  23. VITAMIN D3 CAP [Concomitant]
  24. ZANAFLEX CAP [Concomitant]

REACTIONS (2)
  - Surgery [None]
  - Therapy interrupted [None]
